FAERS Safety Report 10279904 (Version 2)
Quarter: 2014Q3

REPORT INFORMATION
  Report Type: Spontaneous
  Country: DE (occurrence: DE)
  Receive Date: 20140707
  Receipt Date: 20140724
  Transmission Date: 20150326
  Serious: Yes (Hospitalization)
  Sender: FDA-Public Use
  Company Number: DE-JNJFOC-20140702189

PATIENT
  Age: 59 Year
  Sex: Male
  Weight: 93 kg

DRUGS (3)
  1. REMICADE [Suspect]
     Active Substance: INFLIXIMAB
     Indication: PSORIASIS
     Route: 042
     Dates: start: 201007, end: 201308
  2. VERAPAMIL [Concomitant]
     Active Substance: VERAPAMIL HYDROCHLORIDE
     Indication: HYPERTENSION
     Dosage: START DATE: MORE THAN 10 YEARS PRIOR TO THE DATE OF THIS REPORT
     Route: 048
  3. REMICADE [Suspect]
     Active Substance: INFLIXIMAB
     Indication: PSORIATIC ARTHROPATHY
     Route: 042
     Dates: start: 201007, end: 201308

REACTIONS (1)
  - Mycobacterium marinum infection [Not Recovered/Not Resolved]

NARRATIVE: CASE EVENT DATE: 201309
